FAERS Safety Report 21298629 (Version 2)
Quarter: 2023Q1

REPORT INFORMATION
  Report Type: Report from Study
  Country: UA (occurrence: UA)
  Receive Date: 20220906
  Receipt Date: 20230117
  Transmission Date: 20230418
  Serious: Yes (Other)
  Sender: FDA-Public Use
  Company Number: UA-TAKEDA-2020TUS017107

PATIENT
  Age: 25 Year
  Sex: Female

DRUGS (1)
  1. VEDOLIZUMAB [Suspect]
     Active Substance: VEDOLIZUMAB
     Indication: Crohn^s disease
     Dosage: 300 MILLIGRAM
     Route: 042
     Dates: start: 20190226, end: 20220901

REACTIONS (4)
  - Crohn^s disease [Unknown]
  - Tonsillitis [Unknown]
  - COVID-19 [Unknown]
  - Inappropriate schedule of product administration [Unknown]
